FAERS Safety Report 10089050 (Version 5)
Quarter: 2014Q3

REPORT INFORMATION
  Report Type: Report from Study
  Country: US (occurrence: US)
  Receive Date: 20140421
  Receipt Date: 20140703
  Transmission Date: 20150326
  Serious: Yes (Other)
  Sender: FDA-Public Use
  Company Number: US-BAYER-2014-047302

PATIENT
  Age: 63 Year
  Sex: Male

DRUGS (9)
  1. NEXAVAR [Suspect]
     Active Substance: SORAFENIB
     Indication: BONE CANCER
     Dosage: 4 X 200MG
     Route: 048
     Dates: start: 20140307
  2. LOVASTATIN. [Concomitant]
     Active Substance: LOVASTATIN
  3. NEXAVAR [Suspect]
     Active Substance: SORAFENIB
     Indication: BONE CANCER
     Dosage: 400 MG, BID
     Route: 048
     Dates: start: 20140421
  4. TERAZOSIN [Concomitant]
     Active Substance: TERAZOSIN\TERAZOSIN HYDROCHLORIDE
  5. METFORMIN [Concomitant]
     Active Substance: METFORMIN HYDROCHLORIDE
  6. NEXAVAR [Suspect]
     Active Substance: SORAFENIB
     Indication: BONE CANCER
     Dosage: 4 X 200MG
     Route: 048
     Dates: start: 20140327
  7. ASPIRIN. [Concomitant]
     Active Substance: ASPIRIN
  8. LISINOPRIL. [Concomitant]
     Active Substance: LISINOPRIL
  9. NAPROXEN. [Concomitant]
     Active Substance: NAPROXEN

REACTIONS (17)
  - Mass [None]
  - Constipation [Not Recovered/Not Resolved]
  - Off label use [None]
  - Skin fissures [None]
  - Abdominal pain upper [None]
  - Chest pain [None]
  - Visual acuity reduced [None]
  - Skin fissures [None]
  - Pain in extremity [None]
  - Musculoskeletal pain [None]
  - Diarrhoea [Not Recovered/Not Resolved]
  - Muscle spasms [Not Recovered/Not Resolved]
  - Peripheral swelling [None]
  - Drug dose omission [None]
  - Back pain [Not Recovered/Not Resolved]
  - Pain in extremity [None]
  - Epistaxis [Not Recovered/Not Resolved]

NARRATIVE: CASE EVENT DATE: 201403
